FAERS Safety Report 9626082 (Version 1)
Quarter: 2013Q4

REPORT INFORMATION
  Report Type: Spontaneous
  Country: GB (occurrence: GB)
  Receive Date: 20131016
  Receipt Date: 20131016
  Transmission Date: 20140711
  Serious: Yes (Other)
  Sender: FDA-Public Use
  Company Number: GB-ASTELLAS-2013EU008848

PATIENT
  Age: 80 Year
  Sex: Female

DRUGS (2)
  1. VESICARE [Suspect]
     Dosage: UNK
     Route: 065
  2. ASPIRIN [Concomitant]
     Dosage: UNK
     Route: 065

REACTIONS (2)
  - Osteoarthritis [Unknown]
  - Erythema [Unknown]
